FAERS Safety Report 9460445 (Version 2)
Quarter: 2013Q3

REPORT INFORMATION
  Report Type: Spontaneous
  Country: KR (occurrence: KR)
  Receive Date: 20130815
  Receipt Date: 20130829
  Transmission Date: 20140515
  Serious: Yes (Other)
  Sender: FDA-Public Use
  Company Number: KR-BAXTER-2013BAX031368

PATIENT
  Age: 27 Year
  Sex: Female

DRUGS (6)
  1. TISSEEL VHSD (FROZEN) [Suspect]
     Indication: ULCERATIVE KERATITIS
  2. CEFAZOLIN [Concomitant]
     Indication: ULCERATIVE KERATITIS
  3. GATIFLOXACIN [Concomitant]
     Indication: ULCERATIVE KERATITIS
  4. GATIFLOXACIN [Concomitant]
  5. GATIFLOXACIN [Concomitant]
     Route: 061
  6. TOBRAMYCIN [Concomitant]
     Indication: ULCERATIVE KERATITIS

REACTIONS (2)
  - Keratitis fungal [Recovered/Resolved]
  - Post procedural complication [Recovered/Resolved]
